FAERS Safety Report 17554814 (Version 1)
Quarter: 2020Q1

REPORT INFORMATION
  Report Type: Report from Study
  Country: AR (occurrence: AR)
  Receive Date: 20200318
  Receipt Date: 20200318
  Transmission Date: 20200409
  Serious: Yes (Hospitalization, Other)
  Sender: FDA-Public Use
  Company Number: AR-GLAXOSMITHKLINE-AR2020GSK038023

PATIENT
  Sex: Female

DRUGS (1)
  1. LAMOTRIGINE. [Suspect]
     Active Substance: LAMOTRIGINE
     Indication: EPILEPSY
     Dosage: UNK

REACTIONS (8)
  - Skin lesion [Unknown]
  - Toxic epidermal necrolysis [Unknown]
  - Blindness [Unknown]
  - Face injury [Unknown]
  - Injury corneal [Unknown]
  - Drug titration error [Unknown]
  - Dermatitis allergic [Unknown]
  - Exposure during pregnancy [Unknown]
